FAERS Safety Report 8978294 (Version 2)
Quarter: 2013Q1

REPORT INFORMATION
  Report Type: Spontaneous
  Country: HU (occurrence: HU)
  Receive Date: 20121221
  Receipt Date: 20130206
  Transmission Date: 20140127
  Serious: Yes (Hospitalization)
  Sender: FDA-Public Use
  Company Number: HU-ELI_LILLY_AND_COMPANY-HU201212005622

PATIENT
  Age: 65 Year
  Sex: Female

DRUGS (5)
  1. ALIMTA [Suspect]
     Indication: MESOTHELIOMA
     Dosage: 500 MG/M2, UNK
     Route: 042
     Dates: start: 20121105
  2. ENOXAPARIN [Concomitant]
     Indication: ANTICOAGULANT THERAPY
     Dosage: 40 MG, UNK
     Route: 058
  3. FOLIC ACID [Concomitant]
     Indication: CHEMOTHERAPY
     Dosage: 3 MG, UNK
  4. CYANOCOBALAMIN [Concomitant]
     Indication: CHEMOTHERAPY
     Dosage: 1000 UG, UNK
     Route: 030
  5. GRANISETRON [Concomitant]
     Indication: CHEMOTHERAPY
     Dosage: 2 MG, UNK

REACTIONS (1)
  - Thrombosis [Recovered/Resolved]
